FAERS Safety Report 18481371 (Version 1)
Quarter: 2020Q4

REPORT INFORMATION
  Report Type: Spontaneous
  Country: US (occurrence: US)
  Receive Date: 20201109
  Receipt Date: 20201109
  Transmission Date: 20210114
  Serious: Yes (Congenital Anomaly, Other)
  Sender: FDA-Public Use
  Company Number: US-PURDUE-USA-2020-0172569

PATIENT
  Sex: Female

DRUGS (1)
  1. OXYCONTIN [Suspect]
     Active Substance: OXYCODONE HYDROCHLORIDE
     Indication: PRODUCT USED FOR UNKNOWN INDICATION
     Dosage: 10
     Route: 048
     Dates: start: 201203

REACTIONS (8)
  - Dysphemia [Unknown]
  - Hyperreflexia [Unknown]
  - Dysphagia [Unknown]
  - Drug dependence [Unknown]
  - Arnold-Chiari malformation [Unknown]
  - Nerve injury [Unknown]
  - Exposure during pregnancy [Unknown]
  - Migraine [Unknown]
